FAERS Safety Report 20560032 (Version 1)
Quarter: 2022Q1

REPORT INFORMATION
  Report Type: Spontaneous
  Country: JP (occurrence: JP)
  Receive Date: 20220307
  Receipt Date: 20220307
  Transmission Date: 20220423
  Serious: Yes (Other)
  Sender: FDA-Public Use
  Company Number: JP-PFIZER INC-202200330532

PATIENT
  Age: 7 Decade
  Sex: Male

DRUGS (2)
  1. TEMSIROLIMUS [Suspect]
     Active Substance: TEMSIROLIMUS
     Indication: Renal cancer
     Dosage: 25 MG, DAILY
     Route: 041
     Dates: start: 20210620
  2. LAFUTIDINE [Concomitant]
     Active Substance: LAFUTIDINE
     Indication: Prophylaxis against gastrointestinal ulcer
     Dosage: 20 MG, DAILY
     Dates: start: 20210604

REACTIONS (1)
  - Oral disorder [Recovering/Resolving]

NARRATIVE: CASE EVENT DATE: 20210623
